FAERS Safety Report 6412057-7 (Version None)
Quarter: 2009Q4

REPORT INFORMATION
  Report Type: 
  Country: None (occurrence: None)
  Receive Date: 20091020
  Receipt Date: 20091012
  Transmission Date: 20100525
  Serious: Yes (Other)
  Sender: FDA-Public Use
  Company Number: 2009US003461

PATIENT
  Age: 43 Year
  Sex: Female

DRUGS (3)
  1. LEXISCAN [Suspect]
     Indication: SCAN MYOCARDIAL PERFUSION
     Dosage: IV NOS
     Route: 042
     Dates: start: 20090915, end: 20090915
  2. ZYBAN [Suspect]
     Indication: SMOKING CESSATION THERAPY
  3. PROAIR (FLUTICASONE PROPIONATE) [Concomitant]

REACTIONS (3)
  - APHASIA [None]
  - DYSGEUSIA [None]
  - PETIT MAL EPILEPSY [None]
